FAERS Safety Report 4549464-3 (Version None)
Quarter: 2005Q1

REPORT INFORMATION
  Report Type: 
  Country: None (occurrence: None)
  Receive Date: 20050106
  Receipt Date: 20041223
  Transmission Date: 20050727
  Serious: Yes (Death, Other)
  Sender: FDA-Public Use
  Company Number: 2004-04835

PATIENT
  Age: 38 Year
  Sex: Female

DRUGS (4)
  1. FERRLECIT [Suspect]
     Indication: IRON DEFICIENCY ANAEMIA
     Dosage: 62.5MG, DAILY, INTRAVENOUS
     Route: 042
     Dates: start: 20041022, end: 20041024
  2. INDOMETHACIN [Concomitant]
  3. PANTOPRAZOLE (PANTOPRAZOLE) [Concomitant]
  4. PREDNISONE [Concomitant]

REACTIONS (24)
  - ANTINUCLEAR ANTIBODY POSITIVE [None]
  - ANTIPHOSPHOLIPID ANTIBODIES POSITIVE [None]
  - ARTHRALGIA [None]
  - ARTHROPATHY [None]
  - CARDIOGENIC SHOCK [None]
  - COAGULOPATHY [None]
  - CONJUNCTIVITIS [None]
  - CONNECTIVE TISSUE INFLAMMATION [None]
  - DRUG HYPERSENSITIVITY [None]
  - FACE OEDEMA [None]
  - HAEMODIALYSIS [None]
  - HYPOKINESIA [None]
  - JOINT EFFUSION [None]
  - JUVENILE ARTHRITIS [None]
  - KLEBSIELLA INFECTION [None]
  - MYOCARDITIS [None]
  - PERICARDIAL EFFUSION [None]
  - PERICARDITIS [None]
  - PHARYNGEAL OEDEMA [None]
  - RASH ERYTHEMATOUS [None]
  - SEPTIC SHOCK [None]
  - THERAPY NON-RESPONDER [None]
  - THROMBOCYTOPENIA [None]
  - VASCULITIS [None]
